FAERS Safety Report 5093671-0 (Version None)
Quarter: 2006Q3

REPORT INFORMATION
  Report Type: 
  Country: None (occurrence: None)
  Receive Date: 20060829
  Receipt Date: 20060816
  Transmission Date: 20061208
  Serious: Yes (Death)
  Sender: FDA-Public Use
  Company Number: HQWYE662217AUG06

PATIENT
  Age: 20 Year
  Sex: Male

DRUGS (1)
  1. EFFEXOR XR [Suspect]

REACTIONS (9)
  - ABNORMAL BEHAVIOUR [None]
  - AGGRESSION [None]
  - ANGER [None]
  - COMPLETED SUICIDE [None]
  - DISORIENTATION [None]
  - DRUG INEFFECTIVE [None]
  - HALLUCINATION, AUDITORY [None]
  - INJURY ASPHYXIATION [None]
  - MOOD SWINGS [None]
